FAERS Safety Report 20430161 (Version 1)
Quarter: 2022Q1

REPORT INFORMATION
  Report Type: Report from Study
  Country: FR (occurrence: FR)
  Receive Date: 20220204
  Receipt Date: 20220204
  Transmission Date: 20220424
  Serious: Yes (Other)
  Sender: FDA-Public Use
  Company Number: FR-SERVIER-S19013250

PATIENT

DRUGS (6)
  1. ONCASPAR [Suspect]
     Active Substance: PEGASPARGASE
     Indication: Acute lymphocytic leukaemia
     Dosage: 2000 IU, ON D8, D36
     Route: 042
     Dates: start: 20180820, end: 20180917
  2. VINCRISTINE [Suspect]
     Active Substance: VINCRISTINE
     Indication: Acute lymphocytic leukaemia
     Dosage: 1.2 MG, ON D1, D8, D29, D36
     Route: 042
     Dates: start: 20180813, end: 20180917
  3. DEXAMETHASONE [Suspect]
     Active Substance: DEXAMETHASONE
     Indication: Acute lymphocytic leukaemia
     Dosage: 4.5 MG QD, FROM D1 TO D5 AND FROM D29 TO D33
     Route: 048
     Dates: start: 20180813, end: 20180914
  4. METHOTREXATE [Suspect]
     Active Substance: METHOTREXATE
     Indication: Acute lymphocytic leukaemia
     Dosage: 12 MG, ON D2, D30
     Route: 037
     Dates: start: 20180814, end: 20180911
  5. METHOTREXATE [Suspect]
     Active Substance: METHOTREXATE
     Dosage: 20 MG ON D8, D15, D22, D36, D43, D50
     Route: 048
     Dates: start: 20180820, end: 20181001
  6. MERCAPTOPURINE [Suspect]
     Active Substance: MERCAPTOPURINE
     Indication: Acute lymphocytic leukaemia
     Dosage: 20 MG QD FROM D1 TO D21, D29 TO D49
     Route: 048
     Dates: start: 20180813, end: 20180930

REACTIONS (1)
  - Neuropathy peripheral [Recovered/Resolved]

NARRATIVE: CASE EVENT DATE: 20180917
